FAERS Safety Report 22117154 (Version 1)
Quarter: 2023Q1

REPORT INFORMATION
  Report Type: Spontaneous
  Country: CN (occurrence: CN)
  Receive Date: 20230320
  Receipt Date: 20230320
  Transmission Date: 20230418
  Serious: Yes (Other)
  Sender: FDA-Public Use
  Company Number: CN-PFIZER INC-PV202300051142

PATIENT
  Age: 70 Year
  Sex: Male
  Weight: 46 kg

DRUGS (2)
  1. SUNITINIB MALATE [Suspect]
     Active Substance: SUNITINIB MALATE
     Indication: Neoplasm
     Dosage: 37.5 MG, 1X/DAY
     Route: 048
     Dates: start: 20230110, end: 20230314
  2. SUNITINIB MALATE [Suspect]
     Active Substance: SUNITINIB MALATE
     Indication: Renal cancer

REACTIONS (2)
  - Myelosuppression [Recovering/Resolving]
  - Palmar-plantar erythrodysaesthesia syndrome [Unknown]

NARRATIVE: CASE EVENT DATE: 20230201
